FAERS Safety Report 5889843-5 (Version None)
Quarter: 2008Q3

REPORT INFORMATION
  Report Type: 
  Country: None (occurrence: None)
  Receive Date: 20080919
  Receipt Date: 20080911
  Transmission Date: 20090109
  Serious: Yes (Other)
  Sender: FDA-Public Use
  Company Number: US-TYCO HEALTHCARE/MALLINCKRODT-T200801493

PATIENT

DRUGS (2)
  1. THALLOUS CHLORIDE TL 201 [Suspect]
     Indication: SCAN MYOCARDIAL PERFUSION
     Dosage: UNK, SINGLE
     Dates: start: 20080911, end: 20080911
  2. CALCIUM GLUCONATE [Concomitant]
     Indication: CALCIUM DEFICIENCY
     Dosage: UNK, QD
     Route: 048

REACTIONS (1)
  - TETANY [None]
